FAERS Safety Report 4744688-4 (Version None)
Quarter: 2005Q3

REPORT INFORMATION
  Report Type: 
  Country: None (occurrence: None)
  Receive Date: 20050812
  Receipt Date: 20050812
  Transmission Date: 20060218
  Serious: Yes (Other)
  Sender: FDA-Public Use
  Company Number: None

PATIENT
  Age: 81 Year
  Sex: Male
  Weight: 54.4316 kg

DRUGS (14)
  1. FLOMAX [Suspect]
     Indication: BENIGN PROSTATIC HYPERPLASIA
     Dosage: PO QD
     Route: 048
     Dates: start: 20041201
  2. ASPIRIN [Concomitant]
  3. LIPITOR [Concomitant]
  4. NEORAL [Concomitant]
  5. DILTIAZEM [Concomitant]
  6. FOLIC ACID [Concomitant]
  7. KAYEXALATE [Concomitant]
  8. CELLCEPT [Concomitant]
  9. OMEPRAZOLE [Concomitant]
  10. PREDNISONE [Concomitant]
  11. CHLORDIAZEPOXIDE [Concomitant]
  12. PROCARDIA [Concomitant]
  13. TOPROL-XL [Concomitant]
  14. FUROSEMIDE [Concomitant]

REACTIONS (4)
  - IRIDOCELE [None]
  - IRIS DISORDER [None]
  - PROCEDURAL COMPLICATION [None]
  - PUPILLARY REFLEX IMPAIRED [None]
